FAERS Safety Report 5392304-3 (Version None)
Quarter: 2007Q3

REPORT INFORMATION
  Report Type: 
  Country: None (occurrence: None)
  Receive Date: 20070720
  Receipt Date: 20070711
  Transmission Date: 20080115
  Serious: Yes (Hospitalization)
  Sender: FDA-Public Use
  Company Number: IT-ROCHE-506530

PATIENT
  Age: 69 Year
  Sex: Male

DRUGS (2)
  1. ROCEPHIN [Suspect]
     Indication: BRONCHOPNEUMOPATHY
     Dosage: FORM REPORTED AS VIAL.
     Route: 030
     Dates: start: 20070625, end: 20070626
  2. FLUIMUCIL [Concomitant]
     Route: 048

REACTIONS (1)
  - ANGIOEDEMA [None]
